FAERS Safety Report 9994378 (Version 2)
Quarter: 2014Q1

REPORT INFORMATION
  Report Type: Spontaneous
  Country: DE (occurrence: DE)
  Receive Date: 20140311
  Receipt Date: 20140321
  Transmission Date: 20141002
  Serious: Yes (Life-Threatening, Other)
  Sender: FDA-Public Use
  Company Number: DE-ROCHE-1356442

PATIENT
  Age: 70 Year
  Sex: Female
  Weight: 43 kg

DRUGS (5)
  1. MABTHERA [Suspect]
     Indication: DIFFUSE LARGE B-CELL LYMPHOMA
     Dosage: GIVEN 6 TIMES ACCORDING TO R-CHOP SCHEDULE
     Route: 042
     Dates: start: 20130822, end: 20140114
  2. CYCLOPHOSPHAMIDE [Concomitant]
     Dosage: GIVEN 6 TIMES ACCORDING TO R-CHOP SCHEDULE
     Route: 065
     Dates: start: 20130822, end: 20140114
  3. DOXORUBICINE [Concomitant]
     Dosage: GIVEN 6 TIMES ACCORDING TO R-CHOP SCHEDULE
     Route: 065
     Dates: start: 20130822, end: 20140114
  4. VINCRISTINE [Concomitant]
     Dosage: GIVEN 6 TIMES ACCORDING TO R-CHOP SCHEDULE
     Route: 065
     Dates: start: 20130822, end: 20140114
  5. PREDNISONE [Concomitant]
     Dosage: GIVEN 6 TIMES ACCORDING TO R-CHOP SCHEDULE
     Route: 065
     Dates: start: 20130822, end: 20140114

REACTIONS (2)
  - Progressive multifocal leukoencephalopathy [Not Recovered/Not Resolved]
  - Herpes zoster [Unknown]
